FAERS Safety Report 24429388 (Version 1)
Quarter: 2024Q4

REPORT INFORMATION
  Report Type: Other
  Country: US (occurrence: US)
  Receive Date: 20241011
  Receipt Date: 20241011
  Transmission Date: 20250115
  Serious: Yes (Other)
  Sender: Bajaj Medical
  Company Number: US-Bajaj Medical, LLC-2162907

PATIENT
  Age: 42 Year
  Sex: Male
  Weight: 90.909 kg

DRUGS (1)
  1. CHLORHEXIDINE GLUCONATE [Suspect]
     Active Substance: CHLORHEXIDINE GLUCONATE

REACTIONS (1)
  - Breath odour [Not Recovered/Not Resolved]

NARRATIVE: CASE EVENT DATE: 20241007
